FAERS Safety Report 23689468 (Version 2)
Quarter: 2024Q2

REPORT INFORMATION
  Report Type: Report from Study
  Country: US (occurrence: US)
  Receive Date: 20240331
  Receipt Date: 20240521
  Transmission Date: 20240715
  Serious: Yes (Hospitalization, Disabling)
  Sender: FDA-Public Use
  Company Number: US-JNJFOC-20240369769

PATIENT
  Age: 52 Year
  Sex: Female

DRUGS (13)
  1. SPRAVATO [Suspect]
     Active Substance: ESKETAMINE
     Indication: Depression
     Dosage: 56 MG, 7 TOTAL DOSES
     Dates: start: 20230616, end: 20230714
  2. SPRAVATO [Suspect]
     Active Substance: ESKETAMINE
     Dosage: 84 MG, 34 TOTAL DOSES
     Dates: start: 20230718, end: 20231201
  3. SPRAVATO [Suspect]
     Active Substance: ESKETAMINE
     Dosage: 56 MG, 2 TOTAL DOSES
     Dates: start: 20231205, end: 20240105
  4. SPRAVATO [Suspect]
     Active Substance: ESKETAMINE
     Dosage: 84 MG, 1 TOTAL DOSES
     Dates: start: 20240109, end: 20240109
  5. SPRAVATO [Suspect]
     Active Substance: ESKETAMINE
     Dosage: 56 MG, 2 TOTAL DOSES
     Dates: start: 20240112, end: 20240117
  6. SEROQUEL [Suspect]
     Active Substance: QUETIAPINE FUMARATE
     Indication: Depression
     Dosage: 1 TAB IN THE MORNING AND 2 TABS AT HS/ ORAL
     Route: 048
     Dates: start: 201904, end: 202401
  7. HYDROXYCHLOROQUINE DIPHOSPHATE [Concomitant]
     Active Substance: HYDROXYCHLOROQUINE DIPHOSPHATE
     Indication: Autoimmune disorder
     Dosage: 1.5 TABS DAILY / ORAL
     Route: 048
     Dates: start: 202106
  8. CYMBALTA [Concomitant]
     Active Substance: DULOXETINE HYDROCHLORIDE
     Indication: Depression
     Route: 048
     Dates: start: 202107
  9. CYMBALTA [Concomitant]
     Active Substance: DULOXETINE HYDROCHLORIDE
     Indication: Anxiety
  10. BUSPAR [Concomitant]
     Active Substance: BUSPIRONE HYDROCHLORIDE
     Indication: Anxiety
     Route: 048
     Dates: start: 202203
  11. AMANTADINE HYDROCHLORIDE [Concomitant]
     Active Substance: AMANTADINE HYDROCHLORIDE
     Indication: Movement disorder
     Dosage: 100 MG, 1 TAB IN THE MORNING, 2 TABS AT NIGHT / ORAL
     Route: 048
     Dates: start: 201912
  12. TOPAMAX [Concomitant]
     Active Substance: TOPIRAMATE
     Indication: Depression
     Dosage: 100 MG, TAKE 2 TABS DAILY / ORAL
     Route: 048
     Dates: start: 201909
  13. TOPAMAX [Concomitant]
     Active Substance: TOPIRAMATE
     Indication: Anxiety

REACTIONS (2)
  - Parkinson^s disease [Recovered/Resolved]
  - Urinary tract infection [Unknown]

NARRATIVE: CASE EVENT DATE: 20231201
